FAERS Safety Report 13434516 (Version 1)
Quarter: 2017Q2

REPORT INFORMATION
  Report Type: Spontaneous
  Country: US (occurrence: US)
  Receive Date: 20170412
  Receipt Date: 20170412
  Transmission Date: 20170830
  Serious: No
  Sender: FDA-Public Use
  Company Number: US-SA-2016SA062660

PATIENT
  Age: 68 Year
  Sex: Male

DRUGS (2)
  1. WARFARIN [Concomitant]
     Active Substance: WARFARIN
     Indication: BONE DISORDER
     Route: 065
  2. FEXOFENADINE HYDROCHLORIDE. [Suspect]
     Active Substance: FEXOFENADINE HYDROCHLORIDE
     Dosage: PRODUCT START DATE LONG TIME
     Route: 065

REACTIONS (4)
  - Cough [Unknown]
  - Abnormal behaviour [Unknown]
  - Dizziness [Unknown]
  - Wheezing [Unknown]
